FAERS Safety Report 19006129 (Version 2)
Quarter: 2021Q2

REPORT INFORMATION
  Report Type: Spontaneous
  Country: JP (occurrence: JP)
  Receive Date: 20210314
  Receipt Date: 20210419
  Transmission Date: 20210717
  Serious: Yes (Other)
  Sender: FDA-Public Use
  Company Number: JP-009507513-2103JPN000954J

PATIENT
  Age: 74 Year
  Sex: Male
  Weight: 55 kg

DRUGS (1)
  1. KEYTRUDA [Suspect]
     Active Substance: PEMBROLIZUMAB
     Indication: BLADDER TRANSITIONAL CELL CARCINOMA STAGE IV
     Dosage: 200 MILLIGRAM, Q3W
     Route: 041
     Dates: start: 20200706, end: 20201109

REACTIONS (4)
  - Malignant neoplasm progression [Unknown]
  - Gallbladder polyp [Unknown]
  - Immune-mediated hepatic disorder [Recovering/Resolving]
  - Retroperitoneal abscess [Unknown]

NARRATIVE: CASE EVENT DATE: 202011
